FAERS Safety Report 9384493 (Version 1)
Quarter: 2013Q3

REPORT INFORMATION
  Report Type: Report from Study
  Country: CA (occurrence: CA)
  Receive Date: 20130705
  Receipt Date: 20130705
  Transmission Date: 20140515
  Serious: Yes (Hospitalization)
  Sender: FDA-Public Use
  Company Number: CA-JNJFOC-20130620705

PATIENT
  Sex: Male
  Weight: 77.8 kg

DRUGS (11)
  1. REMICADE [Suspect]
     Indication: RHEUMATOID ARTHRITIS
     Route: 042
     Dates: start: 200806
  2. MTX [Concomitant]
     Route: 065
  3. CITALOPRAM [Concomitant]
     Route: 065
  4. PANTOLOC [Concomitant]
     Route: 065
  5. PREDNISONE [Concomitant]
     Route: 065
  6. VENTOLIN [Concomitant]
     Route: 065
  7. ADVAIR [Concomitant]
     Route: 065
  8. POTASSIUM [Concomitant]
     Route: 065
  9. FLOMAX [Concomitant]
     Route: 065
  10. LASIX [Concomitant]
     Route: 065
  11. FOLIC ACID [Concomitant]
     Route: 065

REACTIONS (1)
  - Pulmonary thrombosis [Unknown]
